FAERS Safety Report 7488883-2 (Version None)
Quarter: 2011Q2

REPORT INFORMATION
  Report Type: 
  Country: None (occurrence: None)
  Receive Date: 20110518
  Receipt Date: 20110505
  Transmission Date: 20111010
  Serious: Yes (Hospitalization, Other)
  Sender: FDA-Public Use
  Company Number: PHHY2010BR19317

PATIENT
  Sex: Female

DRUGS (5)
  1. EXELON [Suspect]
     Dosage: 1.5 MG, UNK
     Route: 048
  2. RISPERIDONE [Suspect]
     Dosage: UNK UKN, UNK
  3. RANITIDINE [Suspect]
     Dosage: UNK UKN, UNK
  4. LOSARTAN POTASSIUM [Suspect]
     Dosage: UNK UKN, UNK
  5. SERTRALINE HYDROCHLORIDE [Suspect]
     Dosage: UNK UKN, UNK

REACTIONS (10)
  - TREMOR [None]
  - TACHYCARDIA [None]
  - INSOMNIA [None]
  - MUSCLE SPASMS [None]
  - DIARRHOEA [None]
  - URINARY INCONTINENCE [None]
  - ABDOMINAL PAIN [None]
  - CONFUSIONAL STATE [None]
  - CONDITION AGGRAVATED [None]
  - VOMITING [None]
